FAERS Safety Report 4840761-0 (Version None)
Quarter: 2005Q4

REPORT INFORMATION
  Report Type: 
  Country: None (occurrence: None)
  Receive Date: 20051027
  Receipt Date: 20050117
  Transmission Date: 20060501
  Serious: Yes (Other)
  Sender: FDA-Public Use
  Company Number: HQWYE206817JUL04

PATIENT
  Age: 51 Year
  Sex: Female
  Weight: 82.63 kg

DRUGS (6)
  1. PREMARIN [Suspect]
     Indication: HOT FLUSH
     Dosage: 1.25MG DAILY X 25 DAYS  ORAL
     Route: 048
     Dates: start: 19801014, end: 19810114
  2. ALORA [Suspect]
     Indication: HORMONE REPLACEMENT THERAPY
     Dosage: ORAL
     Route: 048
  3. PREMARIN [Suspect]
     Dosage: ORAL
     Route: 048
     Dates: start: 19810114, end: 19900101
  4. CLIMARA [Suspect]
     Indication: HORMONE REPLACEMENT THERAPY
     Dosage: 0.05MG PATCH, TOPICAL; SEE IMAGE
     Route: 061
     Dates: start: 19940101, end: 19970506
  5. CLIMARA [Suspect]
     Indication: HORMONE REPLACEMENT THERAPY
     Dosage: 0.05MG PATCH, TOPICAL; SEE IMAGE
     Route: 061
     Dates: start: 19970506
  6. VIVELLE [Suspect]
     Indication: HORMONE REPLACEMENT THERAPY
     Dosage: ORAL
     Route: 048
     Dates: start: 19980101, end: 20010101

REACTIONS (1)
  - BREAST CANCER IN SITU [None]
